FAERS Safety Report 4945154-3 (Version None)
Quarter: 2006Q1

REPORT INFORMATION
  Report Type: 
  Country: None (occurrence: None)
  Receive Date: 20060117
  Receipt Date: 20041118
  Transmission Date: 20060701
  Serious: Yes (Death)
  Sender: FDA-Public Use
  Company Number: A03200403829

PATIENT
  Age: 76 Year
  Sex: Male
  Weight: 79 kg

DRUGS (2)
  1. PLAVIX [Suspect]
     Indication: CORONARY ARTERIAL STENT INSERTION
     Dosage: 300 MG ONCE - ORAL
     Route: 048
     Dates: start: 20041105, end: 20041105
  2. PLAVIX [Suspect]
     Indication: CORONARY ARTERY DISEASE
     Dosage: 300 MG ONCE - ORAL
     Route: 048
     Dates: start: 20041105, end: 20041105

REACTIONS (5)
  - ACTIVATED PARTIAL THROMBOPLASTIN TIME PROLONGED [None]
  - PLATELET COUNT DECREASED [None]
  - POST PROCEDURAL HAEMORRHAGE [None]
  - PROTHROMBIN TIME PROLONGED [None]
  - SHOCK HAEMORRHAGIC [None]
